FAERS Safety Report 17988599 (Version 1)
Quarter: 2020Q3

REPORT INFORMATION
  Report Type: Spontaneous
  Country: US (occurrence: US)
  Receive Date: 20200706
  Receipt Date: 20200706
  Transmission Date: 20201103
  Serious: No
  Sender: FDA-Public Use
  Company Number: None

PATIENT
  Age: 3 Year
  Sex: Female
  Weight: 13.95 kg

DRUGS (1)
  1. CEFDINIR. [Suspect]
     Active Substance: CEFDINIR
     Indication: URINARY TRACT INFECTION
     Dosage: ?          QUANTITY:6.5 ML;?
     Route: 048
     Dates: start: 20200705

REACTIONS (5)
  - Product prescribing error [None]
  - Incorrect dose administered [None]
  - Drug monitoring procedure not performed [None]
  - Diarrhoea [None]
  - Dose calculation error [None]

NARRATIVE: CASE EVENT DATE: 20200705
